FAERS Safety Report 5870358-5 (Version None)
Quarter: 2008Q3

REPORT INFORMATION
  Report Type: 
  Country: None (occurrence: None)
  Receive Date: 20080904
  Receipt Date: 20071011
  Transmission Date: 20090109
  Serious: No
  Sender: FDA-Public Use
  Company Number: US-BRISTOL-MYERS SQUIBB COMPANY-13938675

PATIENT
  Age: 55 Year
  Sex: Male
  Weight: 100 kg

DRUGS (1)
  1. DEFINITY [Suspect]
     Indication: ECHOCARDIOGRAM
     Dosage: 1.5CC OF DEFINITY IN 8.5CC OF NORMAL SALINE (DILUTED DOSE).
     Route: 042
     Dates: start: 20071011, end: 20071011

REACTIONS (4)
  - ARTHRALGIA [None]
  - BACK PAIN [None]
  - HEADACHE [None]
  - PELVIC PAIN [None]
